FAERS Safety Report 7571615-7 (Version None)
Quarter: 2011Q2

REPORT INFORMATION
  Report Type: 
  Country: None (occurrence: None)
  Receive Date: 20110624
  Receipt Date: 20110621
  Transmission Date: 20111010
  Serious: Yes (Hospitalization)
  Sender: FDA-Public Use
  Company Number: US-GILEAD-2011-0040953

PATIENT
  Age: 83 Year
  Sex: Female

DRUGS (4)
  1. VENTAVIS [Concomitant]
  2. REVATIO [Concomitant]
  3. LETAIRIS [Suspect]
     Indication: PRODUCT USED FOR UNKNOWN INDICATION
     Route: 048
     Dates: start: 20110503
  4. ADCIRCA [Concomitant]

REACTIONS (1)
  - CEREBROVASCULAR ACCIDENT [None]
